FAERS Safety Report 19802779 (Version 2)
Quarter: 2021Q3

REPORT INFORMATION
  Report Type: Spontaneous
  Country: US (occurrence: US)
  Receive Date: 20210908
  Receipt Date: 20210929
  Transmission Date: 20211014
  Serious: Yes (Other)
  Sender: FDA-Public Use
  Company Number: NVSC2021US199297

PATIENT
  Age: 48 Year
  Sex: Female

DRUGS (36)
  1. ESTRACE [Concomitant]
     Active Substance: ESTRADIOL
     Indication: PRODUCT USED FOR UNKNOWN INDICATION
     Dosage: UNK, TIW (0.1 MG/CM, 2 G VEGINALLY DAILY ON MONDAY, WEDNESDAY AND FRIDAY)
     Route: 067
  2. PROZAC [Concomitant]
     Active Substance: FLUOXETINE HYDROCHLORIDE
     Indication: PRODUCT USED FOR UNKNOWN INDICATION
     Dosage: 1 DF, QD  (TAKE WITH 40 MG FOR A TOTAL OF 60 MG)
     Route: 048
  3. MAGNESIUM [Concomitant]
     Active Substance: MAGNESIUM
     Indication: PRODUCT USED FOR UNKNOWN INDICATION
     Dosage: UNK, QD
     Route: 048
  4. GLUCOPHAGE [Concomitant]
     Active Substance: METFORMIN HYDROCHLORIDE
     Indication: PRODUCT USED FOR UNKNOWN INDICATION
     Dosage: 2 DF, BID (2 TABLET WITH MEALS)
     Route: 065
  5. PRILOSEC [Concomitant]
     Active Substance: OMEPRAZOLE MAGNESIUM
     Indication: PRODUCT USED FOR UNKNOWN INDICATION
     Dosage: 1 DF, QOD (1 CACPSULE)
     Route: 065
  6. OXY.IR [Concomitant]
     Active Substance: OXYCODONE HYDROCHLORIDE
     Indication: PAIN
     Dosage: 1 DF, Q4H  (1 IMMEDIATE RELEASE TABLET)
     Route: 048
  7. VOTRIENT [Suspect]
     Active Substance: PAZOPANIB HYDROCHLORIDE
     Dosage: 400 MG, QD
     Route: 065
     Dates: start: 20210423
  8. VOTRIENT [Suspect]
     Active Substance: PAZOPANIB HYDROCHLORIDE
     Dosage: 800 MG, QD
     Route: 065
     Dates: start: 20210514
  9. MULTIVITAMIN AND MINERAL [Concomitant]
     Active Substance: MINERALS\VITAMINS
     Indication: PRODUCT USED FOR UNKNOWN INDICATION
     Dosage: 1 DF, QD
     Route: 048
  10. ROXICODONE [Concomitant]
     Active Substance: OXYCODONE HYDROCHLORIDE
     Indication: PAIN
     Dosage: 1 DF, Q4H (1 IMMEDIEAT RELEASE TABLET)
     Route: 065
  11. SENNA [Concomitant]
     Active Substance: SENNA LEAF\SENNOSIDES\SENNOSIDES A AND B
     Indication: PRODUCT USED FOR UNKNOWN INDICATION
     Dosage: 2 DF, TID (2 CAPSULES)
     Route: 065
  12. VOTRIENT [Suspect]
     Active Substance: PAZOPANIB HYDROCHLORIDE
     Indication: PRODUCT USED FOR UNKNOWN INDICATION
     Dosage: 800 MG
     Route: 048
     Dates: start: 20210420, end: 20210729
  13. TENORMIN [Concomitant]
     Active Substance: ATENOLOL
     Indication: PRODUCT USED FOR UNKNOWN INDICATION
     Dosage: 1 DF, QD, (1 TABLET)
     Route: 048
  14. LIORESAL [Concomitant]
     Active Substance: BACLOFEN
     Indication: PRODUCT USED FOR UNKNOWN INDICATION
     Dosage: 1 DF, QID, (1 TABLET 4 TIMES DAILY)
     Route: 065
  15. MELATONIN [Concomitant]
     Active Substance: MELATONIN
     Indication: PRODUCT USED FOR UNKNOWN INDICATION
     Dosage: UNK (10 MG NIGHTLY)
     Route: 048
  16. NARCAN [Concomitant]
     Active Substance: NALOXONE HYDROCHLORIDE
     Indication: PRODUCT USED FOR UNKNOWN INDICATION
     Dosage: UNK, 1 SPRAY BY NASAL ROUTE ONE TIME FOR DOSE, IF PATIENT NOT BETTER WITHIN 3 MIN UE 2ND)
     Route: 045
  17. CIPRO [Concomitant]
     Active Substance: CIPROFLOXACIN HYDROCHLORIDE
     Indication: PRODUCT USED FOR UNKNOWN INDICATION
     Dosage: 1 DF, BID (1 TABLET 2 TIMES A DAY)
     Route: 048
  18. PROZAC [Concomitant]
     Active Substance: FLUOXETINE HYDROCHLORIDE
     Dosage: 40 MG, QD (1 CAPSULE)
     Route: 048
  19. ATIVAN [Concomitant]
     Active Substance: LORAZEPAM
     Indication: NAUSEA
  20. VOTRIENT [Suspect]
     Active Substance: PAZOPANIB HYDROCHLORIDE
     Dosage: 600 MG, QD
     Route: 065
     Dates: start: 20210430
  21. DURAGESIC [Concomitant]
     Active Substance: FENTANYL
     Dosage: UNK, Q48H (1 PATCHON TO THE SKIN, DO NOT COT THE PATCH)
     Route: 062
  22. ATIVAN [Concomitant]
     Active Substance: LORAZEPAM
     Indication: ANXIETY
     Dosage: 1 DF, Q8H  (1 TABLET EVENRY 8 HOURS AS NEEDED)
     Route: 065
  23. DELTASONE [Concomitant]
     Active Substance: PREDNISONE
     Indication: PRODUCT USED FOR UNKNOWN INDICATION
     Dosage: UNK (50 MG AT 3 HOURS, 7 HOURS AND 10 HOURS PRIOR TO STUDY. PATIENT TAKING DIFFRENTLY 50 MG 13 HOURS
     Route: 065
  24. COLECALCIFEROL [Concomitant]
     Active Substance: CHOLECALCIFEROL
     Indication: PRODUCT USED FOR UNKNOWN INDICATION
     Dosage: 1000 MG, QD (1 DF, 600?1000 MG)
     Route: 048
  25. VITAMIN D [Concomitant]
     Active Substance: VITAMIN D NOS
     Indication: PRODUCT USED FOR UNKNOWN INDICATION
     Dosage: 1 DF, QD (50 MCG, 2000 UT)
     Route: 048
  26. DURAGESIC [Concomitant]
     Active Substance: FENTANYL
     Indication: PRODUCT USED FOR UNKNOWN INDICATION
     Dosage: UNK, Q48H (50 MCG/HR, 1 PATCH ON TO THE SKIN, DO NOT CUT THE PATCH, USE 75 MCG PATCHES TO TOTAL 125
     Route: 062
  27. ZOFRAN [Concomitant]
     Active Substance: ONDANSETRON HYDROCHLORIDE
     Indication: NAUSEA
     Dosage: 1 DF (1 TABLET ON TONGUE AND ALLOW TO DISSLOVE EVERY 8 HOURS AS NEEDED)
     Route: 065
  28. VOTRIENT [Suspect]
     Active Substance: PAZOPANIB HYDROCHLORIDE
     Dosage: UNK
     Route: 048
     Dates: start: 20210810
  29. VOTRIENT [Suspect]
     Active Substance: PAZOPANIB HYDROCHLORIDE
     Dosage: 200 MG, QD
     Route: 065
     Dates: start: 20210402
  30. ELIQUIS [Concomitant]
     Active Substance: APIXABAN
     Indication: PRODUCT USED FOR UNKNOWN INDICATION
     Dosage: 1 DF, BID (1 TABLET BY MOUTH)
     Route: 048
  31. NEURONTIN [Concomitant]
     Active Substance: GABAPENTIN
     Indication: PRODUCT USED FOR UNKNOWN INDICATION
     Dosage: 1 DF, TID (1 TABLET 3 TIMES A DAY)
     Route: 065
  32. CLARITIN [Concomitant]
     Active Substance: LORATADINE
     Indication: PRODUCT USED FOR UNKNOWN INDICATION
     Dosage: 1 DF, QD (1 TABLET)
     Route: 048
  33. NITROSTAT [Concomitant]
     Active Substance: NITROGLYCERIN
     Indication: CHEST PAIN
     Dosage: 1 DF,  (1 TABLET UNDER TONGUE EVERY 5 MIN AS NEEDED MAYBE TAKE UP TO 3 DOSE)
     Route: 065
  34. MIRALAX [Concomitant]
     Active Substance: POLYETHYLENE GLYCOL 3350
     Indication: PRODUCT USED FOR UNKNOWN INDICATION
     Dosage: 17 G (PACKET)
     Route: 048
  35. KLOR?CON [Concomitant]
     Active Substance: POTASSIUM CHLORIDE
     Indication: PRODUCT USED FOR UNKNOWN INDICATION
     Dosage: 1 DF, QD (1 CR TABLET)
     Route: 048
  36. DYAZIDE [Concomitant]
     Active Substance: HYDROCHLOROTHIAZIDE\TRIAMTERENE
     Indication: PRODUCT USED FOR UNKNOWN INDICATION
     Dosage: 1 DF, QD
     Route: 048

REACTIONS (2)
  - Female genital tract fistula [Recovered/Resolved with Sequelae]
  - Headache [Recovered/Resolved]

NARRATIVE: CASE EVENT DATE: 20210727
